FAERS Safety Report 19376316 (Version 1)
Quarter: 2021Q2

REPORT INFORMATION
  Report Type: Spontaneous
  Country: DE (occurrence: DE)
  Receive Date: 20210604
  Receipt Date: 20210604
  Transmission Date: 20210717
  Serious: Yes (Other)
  Sender: FDA-Public Use
  Company Number: DE-TEVA-2021-DE-1916608

PATIENT
  Age: 0 Year
  Sex: Female

DRUGS (4)
  1. INFLUSPLIT TETRA [Concomitant]
     Active Substance: INFLUENZA VIRUS VACCINE
     Indication: IMMUNISATION
     Route: 064
     Dates: start: 20201001, end: 20201001
  2. BISOPROLOL [Suspect]
     Active Substance: BISOPROLOL
     Indication: VENTRICULAR TACHYCARDIA
     Dosage: 2.5 MILLIGRAM DAILY; 2.5 [MG/D (2.5?0?0) ]
     Route: 064
     Dates: start: 20200214, end: 20201104
  3. BOOSTRIX [Concomitant]
     Active Substance: TETANUS TOXOID, REDUCED DIPHTHERIA TOXOID AND ACELLULAR PERTUSSIS VACCINE, ADSORBED ANTIGENS
     Indication: IMMUNISATION
     Route: 064
     Dates: start: 20200917, end: 20200917
  4. FLECAINIDE [Suspect]
     Active Substance: FLECAINIDE
     Indication: ARRHYTHMIA
     Dosage: 100 MILLIGRAM DAILY; 100 [MG/D (50?0?50) ] 2 SEPARATED DOSES
     Route: 064
     Dates: start: 20200214, end: 20201104

REACTIONS (3)
  - Atrial septal defect [Unknown]
  - Foetal exposure during pregnancy [Unknown]
  - Pulmonary artery stenosis [Unknown]

NARRATIVE: CASE EVENT DATE: 20200214
